FAERS Safety Report 18675595 (Version 1)
Quarter: 2020Q4

REPORT INFORMATION
  Report Type: Spontaneous
  Country: MY (occurrence: MY)
  Receive Date: 20201229
  Receipt Date: 20201229
  Transmission Date: 20210114
  Serious: Yes (Hospitalization)
  Sender: FDA-Public Use
  Company Number: MY-AMNEAL PHARMACEUTICALS-2020-AMRX-04043

PATIENT
  Age: 20 Year
  Sex: Male

DRUGS (6)
  1. PHENYTOIN SODIUM. [Suspect]
     Active Substance: PHENYTOIN SODIUM
     Indication: PARTIAL SEIZURES
     Dosage: 300 MILLIGRAM, 1X/DAY
     Route: 065
  2. PHENYTOIN SODIUM. [Suspect]
     Active Substance: PHENYTOIN SODIUM
     Dosage: 600 MILLIGRAM, 1X/DAY
     Route: 065
  3. DIAZEPAM. [Concomitant]
     Active Substance: DIAZEPAM
     Indication: TONIC CONVULSION
     Dosage: UNK
     Route: 042
  4. VALPROIC ACID. [Concomitant]
     Active Substance: VALPROIC ACID
     Dosage: 600/800 MG BD
     Route: 065
  5. VALPROIC ACID. [Concomitant]
     Active Substance: VALPROIC ACID
     Indication: PARTIAL SEIZURES
     Dosage: 600/400 MG BD
     Route: 065
  6. VALPROIC ACID. [Concomitant]
     Active Substance: VALPROIC ACID
     Dosage: 400 MILLIGRAM, BID
     Route: 065

REACTIONS (3)
  - Intentional product use issue [Unknown]
  - Toxicity to various agents [Recovered/Resolved]
  - Blindness [Recovered/Resolved]
